FAERS Safety Report 8811031 (Version 1)
Quarter: 2012Q4

REPORT INFORMATION
  Report Type: 
  Country: US (occurrence: US)
  Receive Date: 20120927
  Receipt Date: 20120927
  Transmission Date: 20130627
  Serious: Yes (Death)
  Sender: FDA-Public Use
  Company Number: US-ROXANE LABORATORIES, INC.-2012-EU-04792GD

PATIENT

DRUGS (3)
  1. MORPHINE [Suspect]
  2. AMITRIPTYLINE [Suspect]
  3. UNSPECIFIED INGREDIENT [Suspect]

REACTIONS (3)
  - Completed suicide [Fatal]
  - Cardiac arrest [None]
  - Respiratory arrest [None]
